FAERS Safety Report 6657330-2 (Version None)
Quarter: 2010Q1

REPORT INFORMATION
  Report Type: 
  Country: None (occurrence: None)
  Receive Date: 20100319
  Receipt Date: 20090722
  Transmission Date: 20100710
  Serious: Yes (Other)
  Sender: FDA-Public Use
  Company Number: 2009SP016301

PATIENT
  Age: 48 Year
  Sex: Male

DRUGS (4)
  1. PEG-INTRON [Suspect]
     Indication: HEPATITIS C
     Dosage: 1.5 MCG/KG;QW;SC : SC
     Route: 058
     Dates: start: 20030101, end: 20031201
  2. PEG-INTRON [Suspect]
     Indication: HEPATITIS C
     Dosage: 1.5 MCG/KG;QW;SC : SC
     Route: 058
     Dates: start: 20040401, end: 20060101
  3. REBETOL [Suspect]
     Indication: HEPATITIS C
     Dosage: 1200 MG;QD;PO : PO
     Route: 048
     Dates: start: 20030101, end: 20031201
  4. REBETOL [Suspect]
     Indication: HEPATITIS C
     Dosage: 1200 MG;QD;PO : PO
     Route: 048
     Dates: start: 20040401, end: 20060101

REACTIONS (8)
  - ANAEMIA [None]
  - DEPENDENCE [None]
  - DISEASE RECURRENCE [None]
  - MENTAL IMPAIRMENT [None]
  - MUSCULOSKELETAL PAIN [None]
  - NEUTROPENIA [None]
  - SUICIDAL IDEATION [None]
  - UNEVALUABLE EVENT [None]
